FAERS Safety Report 13047578 (Version 2)
Quarter: 2017Q2

REPORT INFORMATION
  Report Type: Report from Study
  Country: None (occurrence: NL)
  Receive Date: 20161220
  Receipt Date: 20170405
  Transmission Date: 20170830
  Serious: Yes (Hospitalization)
  Sender: FDA-Public Use
  Company Number: NL-ABBVIE-16P-114-1815163-00

PATIENT
  Age: 76 Year
  Sex: Female
  Weight: 73 kg

DRUGS (1)
  1. DUODOPA [Suspect]
     Active Substance: CARBIDOPA\LEVODOPA
     Indication: PARKINSON^S DISEASE
     Dosage: MORNING DOSE: 9, CONTINUOUS DOSE: 2.1, EXTRA DOSE:  1.5
     Route: 050
     Dates: start: 20131001

REACTIONS (5)
  - Rib fracture [Recovering/Resolving]
  - Extra dose administered [Unknown]
  - Fall [Recovered/Resolved]
  - Dizziness [Not Recovered/Not Resolved]
  - Fall [Not Recovered/Not Resolved]

NARRATIVE: CASE EVENT DATE: 20161213
